FAERS Safety Report 7325286-5 (Version None)
Quarter: 2011Q1

REPORT INFORMATION
  Report Type: 
  Country: None (occurrence: None)
  Receive Date: 20110302
  Receipt Date: 20110217
  Transmission Date: 20110831
  Serious: Yes (Hospitalization)
  Sender: FDA-Public Use
  Company Number: US-JNJFOC-20110300241

PATIENT
  Sex: Female
  Weight: 102.06 kg

DRUGS (3)
  1. HUMIRA [Suspect]
     Indication: PSORIASIS
     Route: 065
  2. REMICADE [Suspect]
     Indication: PSORIASIS
     Route: 042
  3. ETANERCEPT [Concomitant]
     Indication: PSORIASIS

REACTIONS (5)
  - NAUSEA [None]
  - VOMITING [None]
  - PAIN [None]
  - PSORIASIS [None]
  - SWELLING [None]
